FAERS Safety Report 5653422-5 (Version None)
Quarter: 2008Q1

REPORT INFORMATION
  Report Type: 
  Country: None (occurrence: None)
  Receive Date: 20080306
  Receipt Date: 20080303
  Transmission Date: 20080703
  Serious: Yes (Hospitalization)
  Sender: FDA-Public Use
  Company Number: B0495509A

PATIENT
  Age: 82 Year
  Sex: Female
  Weight: 54 kg

DRUGS (7)
  1. VALTREX [Suspect]
     Indication: HERPES ZOSTER
     Dosage: 1000MG THREE TIMES PER DAY
     Route: 048
     Dates: start: 20071108, end: 20071109
  2. BLOPRESS [Concomitant]
     Route: 048
  3. MUNOBAL [Concomitant]
     Route: 048
  4. ASPIRIN [Concomitant]
     Route: 048
  5. SIGMART [Concomitant]
     Route: 065
  6. NITRODERM [Concomitant]
     Route: 062
  7. HALCION [Concomitant]
     Route: 048

REACTIONS (5)
  - AFFECT LABILITY [None]
  - COORDINATION ABNORMAL [None]
  - DYSARTHRIA [None]
  - GAIT DISTURBANCE [None]
  - RENAL FAILURE ACUTE [None]
